FAERS Safety Report 21911612 (Version 1)
Quarter: 2023Q1

REPORT INFORMATION
  Report Type: Spontaneous
  Country: US (occurrence: US)
  Receive Date: 20230125
  Receipt Date: 20230125
  Transmission Date: 20230418
  Serious: No
  Sender: FDA-Public Use
  Company Number: VI-ALLERGAN-2213828US

PATIENT
  Sex: Female

DRUGS (2)
  1. BOTOX COSMETIC [Suspect]
     Active Substance: ONABOTULINUMTOXINA
     Indication: Product used for unknown indication
     Dosage: UNK UNK, SINGLE
     Dates: start: 20220414, end: 20220414
  2. BOTOX COSMETIC [Suspect]
     Active Substance: ONABOTULINUMTOXINA
     Dosage: UNK UNK, SINGLE
     Dates: start: 20220414, end: 20220414

REACTIONS (4)
  - Burning sensation [Unknown]
  - Wrong technique in product usage process [Unknown]
  - Multiple use of single-use product [Unknown]
  - Injection site pain [Unknown]

NARRATIVE: CASE EVENT DATE: 20220414
